APPROVED DRUG PRODUCT: EPIPEN
Active Ingredient: EPINEPHRINE
Strength: 0.3MG/DELIVERY
Dosage Form/Route: INJECTABLE;INTRAMUSCULAR, SUBCUTANEOUS
Application: N019430 | Product #001 | TE Code: AB
Applicant: VIATRIS SPECIALTY LLC
Approved: Dec 22, 1987 | RLD: Yes | RS: Yes | Type: RX